FAERS Safety Report 17826943 (Version 4)
Quarter: 2020Q4

REPORT INFORMATION
  Report Type: Report from Study
  Country: ZA (occurrence: ZA)
  Receive Date: 20200526
  Receipt Date: 20201118
  Transmission Date: 20210113
  Serious: Yes (Death, Hospitalization, Disabling, Other)
  Sender: FDA-Public Use
  Company Number: NVSC2020ZA144037

PATIENT
  Age: 53 Year
  Sex: Female

DRUGS (3)
  1. PROVIGIL [Concomitant]
     Active Substance: MODAFINIL
     Indication: PRODUCT USED FOR UNKNOWN INDICATION
     Dosage: UNK
     Route: 065
  2. AUGMENTIN [Concomitant]
     Active Substance: AMOXICILLIN\CLAVULANATE POTASSIUM
     Indication: PRODUCT USED FOR UNKNOWN INDICATION
     Dosage: UNK
     Route: 065
  3. TUVIGIN [Suspect]
     Active Substance: FINGOLIMOD HYDROCHLORIDE
     Indication: MULTIPLE SCLEROSIS
     Dosage: 0.5 MG, QD
     Route: 048
     Dates: start: 20160217

REACTIONS (30)
  - Blood magnesium decreased [Unknown]
  - Delirium [Unknown]
  - Asthenia [Recovering/Resolving]
  - Renal impairment [Unknown]
  - Exercise tolerance decreased [Unknown]
  - Anal incontinence [Unknown]
  - Renal failure [Fatal]
  - Arthralgia [Unknown]
  - Illness [Unknown]
  - Cellulitis [Not Recovered/Not Resolved]
  - Abscess limb [Unknown]
  - Electrolyte imbalance [Unknown]
  - Relapsing multiple sclerosis [Recovering/Resolving]
  - Hepatic enzyme increased [Not Recovered/Not Resolved]
  - Dysphagia [Unknown]
  - Speech disorder [Unknown]
  - Decreased appetite [Unknown]
  - Nausea [Recovered/Resolved]
  - Hepatic steatosis [Unknown]
  - Tendon disorder [Unknown]
  - Liver disorder [Unknown]
  - Pseudomonas infection [Unknown]
  - Procalcitonin increased [Unknown]
  - Confusional state [Unknown]
  - Eating disorder [Recovering/Resolving]
  - Urinary incontinence [Unknown]
  - Tendon calcification [Unknown]
  - Multiple sclerosis [Unknown]
  - Hypokalaemia [Unknown]
  - Renal disorder [Unknown]

NARRATIVE: CASE EVENT DATE: 20200513
